FAERS Safety Report 6550582-9 (Version None)
Quarter: 2010Q1

REPORT INFORMATION
  Report Type: 
  Country: None (occurrence: None)
  Receive Date: 20100122
  Receipt Date: 20100122
  Transmission Date: 20100710
  Serious: Yes (Other)
  Sender: FDA-Public Use
  Company Number: None

PATIENT
  Sex: Female
  Weight: 66.9056 kg

DRUGS (1)
  1. BENGAY [Suspect]
     Indication: ARTHRITIS
     Dosage: NORMAL
     Dates: start: 20100101

REACTIONS (5)
  - BURNING SENSATION [None]
  - NO THERAPEUTIC RESPONSE [None]
  - PAIN [None]
  - PRODUCT FORMULATION ISSUE [None]
  - PRURITUS [None]
